FAERS Safety Report 6866303-6 (Version None)
Quarter: 2010Q3

REPORT INFORMATION
  Report Type: 
  Country: None (occurrence: None)
  Receive Date: 20100722
  Receipt Date: 20100720
  Transmission Date: 20110219
  Serious: Yes (Hospitalization)
  Sender: FDA-Public Use
  Company Number: FR-SANOFI-AVENTIS-2010SA042056

PATIENT
  Age: 77 Year
  Sex: Male

DRUGS (2)
  1. RIFADIN [Suspect]
     Route: 042
     Dates: start: 20100312, end: 20100407
  2. VANCOMYCIN HCL [Suspect]
     Route: 042
     Dates: start: 20100312, end: 20100407

REACTIONS (7)
  - BILIRUBIN CONJUGATED INCREASED [None]
  - BLOOD BILIRUBIN INCREASED [None]
  - DRUG RASH WITH EOSINOPHILIA AND SYSTEMIC SYMPTOMS [None]
  - EOSINOPHILIA [None]
  - PRURITUS [None]
  - PYREXIA [None]
  - RASH MACULO-PAPULAR [None]
